FAERS Safety Report 13116698 (Version 1)
Quarter: 2017Q1

REPORT INFORMATION
  Report Type: Spontaneous
  Country: SE (occurrence: SE)
  Receive Date: 20170116
  Receipt Date: 20170116
  Transmission Date: 20170428
  Serious: Yes (Other)
  Sender: FDA-Public Use
  Company Number: SE-AUROBINDO-AUR-APL-2017-00355

PATIENT
  Age: 38 Year
  Sex: Female

DRUGS (1)
  1. GABAPENTIN CAPSULES, HARD 300MG [Suspect]
     Active Substance: GABAPENTIN
     Indication: PRODUCT USED FOR UNKNOWN INDICATION
     Dosage: 300 MG, UNK
     Route: 065

REACTIONS (4)
  - Vertigo [Not Recovered/Not Resolved]
  - Diplopia [Not Recovered/Not Resolved]
  - Affect lability [Not Recovered/Not Resolved]
  - Anorgasmia [Not Recovered/Not Resolved]
